FAERS Safety Report 8776200 (Version 3)
Quarter: 2012Q4

REPORT INFORMATION
  Report Type: 
  Country: US (occurrence: US)
  Receive Date: 20120910
  Receipt Date: 20121114
  Transmission Date: 20130627
  Serious: Yes (Death, Hospitalization, Other)
  Sender: FDA-Public Use
  Company Number: US-PFIZER INC-2012218421

PATIENT
  Age: 55 Year
  Sex: Female

DRUGS (27)
  1. REVATIO [Suspect]
     Indication: CONNECTIVE TISSUE DISORDER
     Dosage: 20 mg, 3x/day
     Route: 048
     Dates: start: 20120327, end: 20120731
  2. REVATIO [Suspect]
     Indication: SCLERODERMA
  3. REVATIO [Suspect]
     Indication: RAYNAUD^S DISEASE
  4. REVATIO [Suspect]
     Indication: DIGITAL ULCER
  5. COUMADIN [Suspect]
     Dosage: 14 mg, 1x/day
     Route: 048
     Dates: start: 20120420
  6. AMBIEN [Concomitant]
     Dosage: 20 mg, QHS (10 mg 2 tablets )
     Route: 048
  7. ELAVIL [Concomitant]
     Indication: SLEEP DISORDER
     Dosage: 25 mg, take 1 tab by mouth nightly
     Route: 048
     Dates: start: 20080626
  8. ELAVIL [Concomitant]
     Indication: NERVE PAIN
  9. LACHYDRIN [Concomitant]
     Indication: SCLERODERMA
     Dosage: apply externally 2 times daily, to arms and hands 3 times daily
     Dates: start: 20101217
  10. TENORMIN [Concomitant]
     Dosage: 25 mg, 1x/day
     Route: 048
     Dates: start: 20100408
  11. PLETAL [Concomitant]
     Indication: PERIPHERAL ARTERIAL DISEASE
     Dosage: 100 mg, 2x/day, take on empty stomach
     Route: 048
     Dates: start: 20090313
  12. PLAVIX [Concomitant]
     Dosage: 75 mg, 1x/day every morning
     Route: 048
     Dates: start: 20090313
  13. NEURONTIN [Concomitant]
     Dosage: 600 mg, 2x/day and 1200mg HS
     Route: 048
  14. NEURONTIN [Concomitant]
     Dosage: 1200 mg at bedtime
  15. HALDOL DECANOATE [Concomitant]
     Dosage: 200 mg IM monthly
  16. PRINIVIL [Concomitant]
     Dosage: 2.5 mg, 1x/day
     Route: 048
     Dates: start: 20100408
  17. LITHIUM CARBONATE [Concomitant]
     Dosage: 300 mg qAM and 600 mg qPM
     Route: 048
  18. MEVACOR [Concomitant]
     Dosage: 80 mg, (40 mg 2 tablets nightly)
     Route: 048
     Dates: start: 20090313
  19. MSIR [Concomitant]
     Dosage: 30 mg, take 2 tablets 4 times daily
     Route: 048
     Dates: start: 20120403
  20. CELLCEPT [Concomitant]
     Dosage: 500 mg, 3 tabs 2 times daily
     Route: 048
     Dates: start: 20110802
  21. PRILOSEC [Concomitant]
     Indication: REFLUX ESOPHAGITIS
     Dosage: 20 mg, 1x/day
     Route: 048
     Dates: start: 20100910
  22. TRIHEXYPHENIDYL HYDROCHLORIDE [Concomitant]
     Dosage: 5 mg, 1x/day with food
     Dates: start: 20060609
  23. VITAMIN E [Concomitant]
     Dosage: 800 unit, 1 capsule daily
     Route: 048
  24. LIDEX [Concomitant]
     Dosage: 0.05%, apply on affected area 2-3times daily
     Dates: start: 20110519
  25. WOMEN^S DAILY MULTIVITAMIN PLUS [Concomitant]
     Dosage: Take 1 tab by mouth daily with food
     Route: 048
     Dates: start: 20100228
  26. PHENYLEPHRINE HYDROCHLORIDE [Concomitant]
     Dosage: 10 mg, 3x/day
     Dates: start: 20110826
  27. COMPAZINE [Concomitant]
     Dosage: 5 mg, take 1 tablet every 4 hours as needed
     Route: 048
     Dates: start: 20120216

REACTIONS (11)
  - Pancreatic carcinoma [Fatal]
  - Pancreatic abscess [Unknown]
  - Candidiasis [Unknown]
  - Immunosuppression [Unknown]
  - Metastases to liver [Unknown]
  - Splenic infarction [Unknown]
  - Pancreatic cyst [Unknown]
  - Gastritis [Unknown]
  - Coagulation time prolonged [Recovered/Resolved]
  - Constipation [Unknown]
  - Off label use [Unknown]
